FAERS Safety Report 9026365 (Version 1)
Quarter: 2013Q1

REPORT INFORMATION
  Report Type: Spontaneous
  Country: PK (occurrence: PK)
  Receive Date: 20130123
  Receipt Date: 20130123
  Transmission Date: 20140127
  Serious: Yes (Death)
  Sender: FDA-Public Use
  Company Number: PHHY2013PK005877

PATIENT
  Age: 87 Year
  Sex: Male
  Weight: 68 kg

DRUGS (1)
  1. EXELON PATCH [Suspect]
     Dosage: 9.5 MG, DAILY
     Route: 062
     Dates: start: 20110328

REACTIONS (3)
  - Renal failure [Fatal]
  - Urinary tract disorder [Unknown]
  - Nephrolithiasis [Unknown]
